FAERS Safety Report 6523050-8 (Version None)
Quarter: 2009Q4

REPORT INFORMATION
  Report Type: 
  Country: None (occurrence: None)
  Receive Date: 20091222
  Receipt Date: 20091207
  Transmission Date: 20100525
  Serious: Yes (Hospitalization)
  Sender: FDA-Public Use
  Company Number: 09-106

PATIENT
  Age: 73 Year
  Sex: Female

DRUGS (3)
  1. CEFEPIME [Suspect]
     Indication: PNEUMONIA
     Dosage: INTRAVENOUS
     Route: 042
  2. CIPROFLOXACIN [Suspect]
     Indication: PNEUMONIA
  3. VANCOMYCIN [Suspect]
     Indication: PNEUMONIA

REACTIONS (14)
  - BLOOD CREATININE INCREASED [None]
  - BLOOD UREA INCREASED [None]
  - CEREBRAL DISORDER [None]
  - CEREBRAL VENTRICLE DILATATION [None]
  - CONVULSION [None]
  - CREATININE RENAL CLEARANCE DECREASED [None]
  - DEPRESSED LEVEL OF CONSCIOUSNESS [None]
  - ENCEPHALOPATHY [None]
  - HAEMODIALYSIS [None]
  - LUNG INFILTRATION [None]
  - PLEURAL EFFUSION [None]
  - SPUTUM CULTURE POSITIVE [None]
  - STATUS EPILEPTICUS [None]
  - WOUND INFECTION PSEUDOMONAS [None]
